FAERS Safety Report 25539224 (Version 1)
Quarter: 2025Q3

REPORT INFORMATION
  Report Type: Spontaneous
  Country: US (occurrence: None)
  Receive Date: 20250709
  Receipt Date: 20250709
  Transmission Date: 20251021
  Serious: Yes (Life-Threatening, Hospitalization)
  Sender: FDA-CTU
  Company Number: None

PATIENT
  Age: 79 Year
  Sex: Female
  Weight: 82 kg

DRUGS (1)
  1. DONANEMAB-AZBT [Suspect]
     Active Substance: DONANEMAB-AZBT
     Route: 042
     Dates: start: 20250623, end: 20250623

REACTIONS (3)
  - Chills [None]
  - Chills [None]
  - Cyanosis [None]

NARRATIVE: CASE EVENT DATE: 20250623
